FAERS Safety Report 4278641-4 (Version None)
Quarter: 2004Q1

REPORT INFORMATION
  Report Type: 
  Country: None (occurrence: None)
  Receive Date: 20040124
  Receipt Date: 20031027
  Transmission Date: 20041129
  Serious: No
  Sender: FDA-Public Use
  Company Number: 03P-163-0238901-00

PATIENT
  Age: 61 Year
  Sex: Female
  Weight: 51.2565 kg

DRUGS (10)
  1. HUMIRA [Suspect]
     Indication: RHEUMATOID ARTHRITIS
     Dosage: 40 MG, 1 IN 2 WK, SUBCUTANEOUS
     Route: 058
     Dates: start: 20030401
  2. ROFECOXIB [Concomitant]
  3. ESOMEPRAZOLE [Concomitant]
  4. LEVOTHRYOXINE SODIUM [Concomitant]
  5. ALENDRONATE SODIUM [Concomitant]
  6. DAPSONE [Concomitant]
  7. PYRIDOXINE HYDROCHLORIDE [Concomitant]
  8. CALCIUM [Concomitant]
  9. WOMANS VITAMINS [Concomitant]
  10. LEVOTHYROID [Concomitant]

REACTIONS (3)
  - MACULAR HOLE [None]
  - RED BLOOD CELL COUNT DECREASED [None]
  - VISUAL DISTURBANCE [None]
